FAERS Safety Report 14139981 (Version 4)
Quarter: 2018Q1

REPORT INFORMATION
  Report Type: Spontaneous
  Country: US (occurrence: US)
  Receive Date: 20171030
  Receipt Date: 20180103
  Transmission Date: 20180508
  Serious: No
  Sender: FDA-Public Use
  Company Number: US-CELGENEUS-USA-20171007913

PATIENT
  Sex: Male
  Weight: 86.26 kg

DRUGS (4)
  1. REVLIMID [Suspect]
     Active Substance: LENALIDOMIDE
     Dosage: 25 MILLIGRAM
     Route: 048
     Dates: start: 20171010, end: 20171224
  2. VELCADE SQ [Concomitant]
     Indication: PLASMA CELL MYELOMA
     Route: 065
  3. DEXAMETHASONE. [Concomitant]
     Active Substance: DEXAMETHASONE
     Indication: PLASMA CELL MYELOMA
     Dosage: 40 MILLIGRAM
     Route: 048
  4. REVLIMID [Suspect]
     Active Substance: LENALIDOMIDE
     Indication: PLASMA CELL MYELOMA
     Dosage: 25 MILLIGRAM
     Route: 048
     Dates: start: 201709

REACTIONS (11)
  - Musculoskeletal pain [Unknown]
  - Rash pruritic [Not Recovered/Not Resolved]
  - Flushing [Unknown]
  - Dehydration [Unknown]
  - Blood magnesium decreased [Unknown]
  - Blood potassium increased [Not Recovered/Not Resolved]
  - Diarrhoea [Unknown]
  - Blood sodium decreased [Not Recovered/Not Resolved]
  - Dizziness [Recovered/Resolved]
  - Constipation [Unknown]
  - Joint swelling [Not Recovered/Not Resolved]

NARRATIVE: CASE EVENT DATE: 2017
